FAERS Safety Report 13235444 (Version 1)
Quarter: 2017Q1

REPORT INFORMATION
  Report Type: Spontaneous
  Country: CN (occurrence: CN)
  Receive Date: 20170215
  Receipt Date: 20170215
  Transmission Date: 20170428
  Serious: Yes (Other)
  Sender: FDA-Public Use
  Company Number: CN-PFIZER INC-2017062219

PATIENT

DRUGS (1)
  1. SOLU-MEDROL [Suspect]
     Active Substance: METHYLPREDNISOLONE SODIUM SUCCINATE
     Indication: SURGERY
     Dosage: UNK

REACTIONS (12)
  - Chest discomfort [Unknown]
  - Restlessness [Unknown]
  - Hiccups [Unknown]
  - Paraesthesia oral [Recovered/Resolved]
  - Weight decreased [Unknown]
  - Depression [Unknown]
  - Necrosis [Unknown]
  - Gastrointestinal disorder [Unknown]
  - Retching [Unknown]
  - Vomiting [Unknown]
  - Memory impairment [Unknown]
  - Drug ineffective [Unknown]
